FAERS Safety Report 8818761 (Version 1)
Quarter: 2012Q4

REPORT INFORMATION
  Report Type: 
  Country: US (occurrence: US)
  Receive Date: 20121001
  Receipt Date: 20121001
  Transmission Date: 20130627
  Serious: Yes (Death)
  Sender: FDA-Public Use
  Company Number: US-ROCHE-1104066

PATIENT
  Sex: Female

DRUGS (2)
  1. HERCEPTIN [Suspect]
     Indication: NEOPLASM MALIGNANT
     Route: 065
  2. TAXOTERE [Concomitant]

REACTIONS (3)
  - Death [Fatal]
  - Abdominal pain [Unknown]
  - Weight decreased [Unknown]
